FAERS Safety Report 8605782-0 (Version None)
Quarter: 2012Q3

REPORT INFORMATION
  Report Type: 
  Country: None (occurrence: None)
  Receive Date: 20120809
  Receipt Date: 20120809
  Transmission Date: 20120928
  Serious: Yes (Other)
  Sender: FDA-Public Use
  Company Number: None

PATIENT
  Sex: Male
  Weight: 108.8633 kg

DRUGS (1)
  1. CLOPIDOGREL [Suspect]
     Indication: ANTICOAGULANT THERAPY
     Dosage: 1 TABLET 3 TIMES A WEEK
     Dates: start: 20120613, end: 20120627

REACTIONS (5)
  - PRURITUS GENERALISED [None]
  - BLISTER [None]
  - RASH [None]
  - SEPSIS [None]
  - PRODUCT SUBSTITUTION ISSUE [None]
